FAERS Safety Report 10740987 (Version 1)
Quarter: 2015Q1

REPORT INFORMATION
  Report Type: Spontaneous
  Country: HR (occurrence: HR)
  Receive Date: 20150127
  Receipt Date: 20150127
  Transmission Date: 20150721
  Serious: Yes (Hospitalization)
  Sender: FDA-Public Use
  Company Number: HR-TEVA-535139ISR

PATIENT
  Age: 68 Year
  Sex: Female
  Weight: 82 kg

DRUGS (4)
  1. KALCIJ FOLINAT PLIVA [Suspect]
     Active Substance: LEUCOVORIN CALCIUM
     Indication: RECTAL CANCER
     Route: 041
     Dates: start: 20130612, end: 20130613
  2. FLUOROURACIL PLIVA [Suspect]
     Active Substance: FLUOROURACIL
     Indication: RECTAL CANCER
     Route: 041
     Dates: start: 20130612, end: 20130613
  3. FLUOROURACIL PLIVA [Suspect]
     Active Substance: FLUOROURACIL
     Indication: RECTAL CANCER
     Route: 041
     Dates: start: 20130612, end: 20130613
  4. SINOXAL [Suspect]
     Active Substance: OXALIPLATIN
     Indication: RECTAL CANCER
     Route: 041
     Dates: start: 20130612, end: 20130612

REACTIONS (1)
  - Neutropenia [Recovered/Resolved]

NARRATIVE: CASE EVENT DATE: 20130624
